FAERS Safety Report 18752697 (Version 1)
Quarter: 2021Q1

REPORT INFORMATION
  Report Type: Spontaneous
  Country: US (occurrence: US)
  Receive Date: 20210118
  Receipt Date: 20210118
  Transmission Date: 20210419
  Serious: Yes (Hospitalization, Other)
  Sender: FDA-Public Use
  Company Number: US-PURDUE-USA-2020-0197643

PATIENT
  Sex: Male

DRUGS (15)
  1. FLUTICASONE PROPIONATE. [Concomitant]
     Active Substance: FLUTICASONE PROPIONATE
     Indication: BACK PAIN
     Dosage: 1 SPRAY INTO EACH NOSTRIL, QD
     Route: 045
  2. GABAPENTIN. [Concomitant]
     Active Substance: GABAPENTIN
     Indication: BACK PAIN
     Dosage: 600MG, TID
     Route: 048
  3. ALBUTEROL HFA [Concomitant]
     Active Substance: ALBUTEROL SULFATE
     Indication: BACK PAIN
     Dosage: 2 PUFFS, QID
     Route: 055
  4. NITROGLYCERIN. [Concomitant]
     Active Substance: NITROGLYCERIN
     Indication: BACK PAIN
     Dosage: 0.4MG, PRN
     Route: 060
  5. LEVOTHYROXINE. [Concomitant]
     Active Substance: LEVOTHYROXINE
     Indication: BACK PAIN
     Dosage: 112MCG, QD
     Route: 048
  6. MOMETASONE [Concomitant]
     Active Substance: MOMETASONE
     Indication: BACK PAIN
     Dosage: 220MCG/ 2 PUFFS QD
     Route: 055
  7. HYDROMORPHONE TABLET (RHODES) [Suspect]
     Active Substance: HYDROMORPHONE
     Indication: BACK PAIN
     Dosage: UNKNOWN
     Route: 048
  8. HYDROCHLOROTHIAZIDE. [Concomitant]
     Active Substance: HYDROCHLOROTHIAZIDE
     Indication: BACK PAIN
     Dosage: 25MG, QD
     Route: 048
  9. OXYCODONE/ ACETAMINOPHEN TABLETS [Suspect]
     Active Substance: ACETAMINOPHEN\OXYCODONE HYDROCHLORIDE
     Indication: BACK PAIN
     Dosage: 10?325MG, QID/ PRN
     Route: 048
  10. MELOXICAM. [Concomitant]
     Active Substance: MELOXICAM
     Indication: BACK PAIN
     Dosage: UNKNOWN
     Route: 065
  11. PRAMIPEXOLE. [Concomitant]
     Active Substance: PRAMIPEXOLE
     Indication: BACK PAIN
     Dosage: 0.5MG, TID
     Route: 048
  12. OXYCONTIN [Suspect]
     Active Substance: OXYCODONE HYDROCHLORIDE
     Indication: BACK PAIN
     Dosage: 10MG, BID
     Route: 048
  13. GLIPIZIDE. [Concomitant]
     Active Substance: GLIPIZIDE
     Indication: BACK PAIN
     Dosage: 5MG, BID
     Route: 048
  14. OXYFAST [Suspect]
     Active Substance: OXYCODONE
     Indication: BACK PAIN
     Dosage: UNKNOWN
     Route: 048
  15. IBUPROFEN. [Concomitant]
     Active Substance: IBUPROFEN
     Indication: BACK PAIN
     Dosage: 800MG, QID / PRN
     Route: 048

REACTIONS (4)
  - Impaired quality of life [Unknown]
  - Drug dependence [Unknown]
  - Postoperative wound complication [Unknown]
  - Staphylococcal infection [Unknown]
